FAERS Safety Report 17089440 (Version 4)
Quarter: 2020Q2

REPORT INFORMATION
  Report Type: Report from Study
  Country: US (occurrence: US)
  Receive Date: 20191128
  Receipt Date: 20200423
  Transmission Date: 20200713
  Serious: Yes (Hospitalization, Other)
  Sender: FDA-Public Use
  Company Number: US-GLAXOSMITHKLINE-2019-TSO02465-US

PATIENT
  Age: 50 Year
  Sex: Female
  Weight: 72.56 kg

DRUGS (5)
  1. NIRAPARIB [Suspect]
     Active Substance: NIRAPARIB
     Indication: MALIGNANT PERITONEAL NEOPLASM
     Dosage: 200 MG, QPM WITH FOOD
     Route: 048
     Dates: start: 20190621
  2. NIRAPARIB [Suspect]
     Active Substance: NIRAPARIB
     Dosage: 200 MG QPM
     Route: 048
     Dates: end: 20200323
  3. NIRAPARIB [Suspect]
     Active Substance: NIRAPARIB
     Dosage: 100 MG, QD
     Route: 048
  4. NIRAPARIB [Suspect]
     Active Substance: NIRAPARIB
     Dosage: 200 MG, QPM WITH FOOD
     Route: 048
     Dates: start: 20190701
  5. NIRAPARIB [Suspect]
     Active Substance: NIRAPARIB
     Dosage: 200 MG QPM
     Route: 048

REACTIONS (17)
  - Red blood cell count decreased [Not Recovered/Not Resolved]
  - Malaise [Unknown]
  - White blood cell count decreased [Unknown]
  - Dizziness [Recovering/Resolving]
  - Laboratory test abnormal [Unknown]
  - Dysphagia [Unknown]
  - Drug ineffective [Unknown]
  - Hospitalisation [Unknown]
  - Oropharyngeal pain [Unknown]
  - Gingival abscess [Unknown]
  - Headache [Unknown]
  - Haemoglobin decreased [Recovering/Resolving]
  - Influenza [Unknown]
  - Contrast media allergy [Unknown]
  - Weight decreased [Recovering/Resolving]
  - Nausea [Recovering/Resolving]
  - Recurrent cancer [Unknown]

NARRATIVE: CASE EVENT DATE: 2019
